FAERS Safety Report 8174822-8 (Version None)
Quarter: 2012Q1

REPORT INFORMATION
  Report Type: 
  Country: None (occurrence: None)
  Receive Date: 20120229
  Receipt Date: 20120217
  Transmission Date: 20120608
  Serious: Yes (Other)
  Sender: FDA-Public Use
  Company Number: PHHY2012CA015321

PATIENT
  Sex: Female

DRUGS (3)
  1. MYFORTIC [Suspect]
     Dosage: 5 DF, UNK
  2. PREDNISONE TAB [Concomitant]
     Dosage: UNK UKN, UNK
  3. MYFORTIC [Suspect]
     Indication: LUPUS VASCULITIS
     Dosage: 4 DF, UNK
     Route: 048
     Dates: start: 20110301

REACTIONS (10)
  - EYE PAIN [None]
  - SUICIDAL IDEATION [None]
  - MUSCLE SPASMS [None]
  - DROOLING [None]
  - DYSPHAGIA [None]
  - GRIP STRENGTH DECREASED [None]
  - NO THERAPEUTIC RESPONSE [None]
  - HEADACHE [None]
  - FACIAL PARESIS [None]
  - HEMIPARESIS [None]
